FAERS Safety Report 5488496-8 (Version None)
Quarter: 2007Q4

REPORT INFORMATION
  Report Type: 
  Country: None (occurrence: None)
  Receive Date: 20071005
  Receipt Date: 20070820
  Transmission Date: 20080405
  Serious: No
  Sender: FDA-Public Use
  Company Number: PHEH2007US11530

PATIENT
  Sex: Female

DRUGS (1)
  1. TEKTURNA [Suspect]
     Dosage: 300 MG, ORAL
     Route: 048
     Dates: start: 20070817, end: 20070817

REACTIONS (1)
  - POLLAKIURIA [None]
